FAERS Safety Report 9848825 (Version 2)
Quarter: 2014Q1

REPORT INFORMATION
  Report Type: Spontaneous
  Country: JP (occurrence: JP)
  Receive Date: 20140128
  Receipt Date: 20140128
  Transmission Date: 20141002
  Serious: Yes (Other)
  Sender: FDA-Public Use
  Company Number: PHHY2014JP007191

PATIENT
  Age: 16 Year
  Sex: Female
  Weight: 51 kg

DRUGS (9)
  1. NEORAL [Suspect]
     Indication: SYSTEMIC LUPUS ERYTHEMATOSUS
     Dosage: 300 MG, UNK
     Route: 048
     Dates: start: 20140109, end: 20140114
  2. NEORAL [Suspect]
     Indication: HISTIOCYTOSIS HAEMATOPHAGIC
     Dosage: 200 MG, UNK
     Route: 048
     Dates: start: 20140115, end: 20140115
  3. PREDONINE [Concomitant]
     Indication: HISTIOCYTOSIS HAEMATOPHAGIC
     Dosage: 50 MG, UNK
     Route: 048
     Dates: start: 20140111
  4. MYSLEE [Concomitant]
     Indication: INSOMNIA
     Dosage: 5 MG, UNK
     Dates: start: 20140112, end: 20140112
  5. LENDORMIN [Concomitant]
     Indication: INSOMNIA
     Dosage: 0.25 MG, UNK
     Route: 048
     Dates: start: 20140113, end: 20140113
  6. AMOBAN [Concomitant]
     Indication: INSOMNIA
     Dosage: 7.5 MG, UNK
     Route: 048
     Dates: start: 20140114
  7. TAKEPRON [Concomitant]
     Indication: PROPHYLAXIS AGAINST GASTROINTESTINAL ULCER
     Dosage: 15 MG, UNK
     Route: 048
     Dates: start: 20131229
  8. SOLU-MEDROL [Concomitant]
     Indication: HISTIOCYTOSIS HAEMATOPHAGIC
     Dosage: 1000 MG, UNK
     Dates: start: 20140108, end: 20140110
  9. BENAMBAX [Concomitant]
     Indication: PNEUMOCYSTIS JIROVECII PNEUMONIA
     Dosage: 300 MG, UNK
     Dates: start: 20140108, end: 20140108

REACTIONS (15)
  - Blood lactate dehydrogenase increased [Unknown]
  - Posterior reversible encephalopathy syndrome [Recovering/Resolving]
  - Grand mal convulsion [Recovering/Resolving]
  - Headache [Recovered/Resolved]
  - Partial seizures [Recovering/Resolving]
  - Dizziness [Recovering/Resolving]
  - Aspartate aminotransferase increased [Unknown]
  - Alanine aminotransferase increased [Unknown]
  - Gamma-glutamyltransferase increased [Unknown]
  - White blood cell count decreased [Unknown]
  - Platelet count decreased [Unknown]
  - Blood alkaline phosphatase increased [Unknown]
  - Haemoglobin decreased [Unknown]
  - Haematocrit decreased [Unknown]
  - Immunosuppressant drug level increased [Unknown]
